FAERS Safety Report 6286439-0 (Version None)
Quarter: 2009Q3

REPORT INFORMATION
  Report Type: 
  Country: None (occurrence: None)
  Receive Date: 20090728
  Receipt Date: 20090720
  Transmission Date: 20100115
  Serious: Yes (Hospitalization, Congenital Anomaly)
  Sender: FDA-Public Use
  Company Number: A0761578A

PATIENT
  Sex: Female
  Weight: 2.7 kg

DRUGS (5)
  1. PAXIL [Suspect]
     Indication: ANXIETY
     Dosage: 40MG PER DAY
  2. WELLBUTRIN [Concomitant]
  3. PRINIVIL [Concomitant]
  4. VITAMIN TAB [Concomitant]
  5. AMOXICILLIN [Concomitant]

REACTIONS (4)
  - AMNIOTIC BAND SYNDROME [None]
  - DRUG EXPOSURE DURING PREGNANCY [None]
  - LEG AMPUTATION [None]
  - LIMB MALFORMATION [None]
